FAERS Safety Report 8911620 (Version 3)
Quarter: 2013Q2

REPORT INFORMATION
  Report Type: Report from Study
  Country: JP (occurrence: JP)
  Receive Date: 20121116
  Receipt Date: 20130619
  Transmission Date: 20140414
  Serious: Yes (Death, Life-Threatening)
  Sender: FDA-Public Use
  Company Number: JP-PFIZER INC-2012283344

PATIENT
  Age: 77 Year
  Sex: Male
  Weight: 56 kg

DRUGS (19)
  1. XALKORI [Suspect]
     Indication: NON-SMALL CELL LUNG CANCER
     Dosage: 250 MG, 2X/DAY
     Route: 048
     Dates: start: 20120815, end: 20120907
  2. SELBEX [Concomitant]
     Dosage: 150 MG, 1X/DAY
     Route: 048
     Dates: start: 20120816
  3. NAIXAN [Concomitant]
     Dosage: 300 MG, 1X/DAY
     Route: 048
     Dates: start: 20120816
  4. PROHEPARUM [Concomitant]
     Dosage: 6 TABLETS PER DAY
     Route: 048
     Dates: start: 20120816, end: 20120907
  5. MAGNESIUM OXIDE [Concomitant]
     Dosage: 1.5 G PER DAY
     Route: 048
     Dates: start: 20120816, end: 20120907
  6. URSO [Concomitant]
     Dosage: 600 MG, 1X/DAY
     Route: 048
     Dates: start: 20120816, end: 20120907
  7. BASEN [Concomitant]
     Dosage: 0.9 MG PER DAY
     Route: 048
     Dates: start: 20120816, end: 20120903
  8. BASEN [Concomitant]
     Dosage: 0.3 MG PER DAY
     Route: 048
     Dates: start: 20120904, end: 20120907
  9. JANUVIA [Concomitant]
     Dosage: 50 MG PER DAY
     Route: 048
     Dates: start: 20120816, end: 20120907
  10. OXINORM (OXYCODONE HYDROCHLORIDE) [Concomitant]
     Dosage: 5 MG PER DAY
     Route: 048
     Dates: start: 20120829, end: 20120831
  11. TASMOLIN [Concomitant]
     Dosage: 4 MG PER DAY
     Route: 048
     Dates: start: 20120830, end: 20120830
  12. TASMOLIN [Concomitant]
     Dosage: 2 MG PER DAY
     Route: 048
     Dates: start: 20120831, end: 20120907
  13. RISPERDAL [Concomitant]
     Dosage: 4 MG PER DAY
     Route: 048
     Dates: start: 20120830, end: 20120830
  14. RISPERDAL [Concomitant]
     Dosage: 2 MG PER DAY
     Route: 048
     Dates: start: 20120831, end: 20120907
  15. BESACOLIN [Concomitant]
     Dosage: 0.6 G PER DAY
     Route: 048
     Dates: start: 20120904, end: 20120907
  16. TAMSULOSIN HYDROCHLORIDE [Concomitant]
     Dosage: 0.2 MG PER DAY
     Route: 048
     Dates: start: 20120904, end: 20120907
  17. LASIX [Concomitant]
     Dosage: 20 MG PER DAY
     Route: 048
     Dates: start: 20120905, end: 20120905
  18. LASIX [Concomitant]
     Dosage: 40 MG PER DAY
     Route: 048
     Dates: start: 20120907, end: 20120907
  19. LASIX [Concomitant]
     Dosage: 40 MG, 1X/DAY
     Route: 065
     Dates: start: 20120906, end: 20120906

REACTIONS (3)
  - Pneumonia aspiration [Recovering/Resolving]
  - Disease progression [Fatal]
  - Non-small cell lung cancer [Fatal]
